FAERS Safety Report 5950896-7 (Version None)
Quarter: 2008Q4

REPORT INFORMATION
  Report Type: 
  Country: None (occurrence: None)
  Receive Date: 20081110
  Receipt Date: 20081029
  Transmission Date: 20090506
  Serious: Yes (Hospitalization, Other)
  Sender: FDA-Public Use
  Company Number: 54001

PATIENT
  Age: 75 Year
  Sex: Male

DRUGS (1)
  1. RIFAMPIN [Suspect]
     Indication: ATYPICAL MYCOBACTERIAL INFECTION
     Dosage: 150MG 3 TIMES DAILY

REACTIONS (2)
  - MELANOSIS [None]
  - OESOPHAGEAL DISORDER [None]
